FAERS Safety Report 15346736 (Version 1)
Quarter: 2018Q3

REPORT INFORMATION
  Report Type: Spontaneous
  Country: FR (occurrence: FR)
  Receive Date: 20180904
  Receipt Date: 20180904
  Transmission Date: 20181010
  Serious: Yes (Congenital Anomaly, Other)
  Sender: FDA-Public Use
  Company Number: FR-IPCA LABORATORIES LIMITED-IPC-2018-FR-001812

PATIENT

DRUGS (1)
  1. HYDROXYCHLOROQUINE [Suspect]
     Active Substance: HYDROXYCHLOROQUINE
     Indication: PRODUCT USED FOR UNKNOWN INDICATION
     Dosage: UNK
     Route: 064

REACTIONS (7)
  - Low birth weight baby [Recovered/Resolved]
  - Pneumoperitoneum [Unknown]
  - Placental insufficiency [Unknown]
  - Premature baby [Unknown]
  - Nephrocalcinosis [Unknown]
  - Volvulus of small bowel [Recovered/Resolved]
  - Foetal exposure during pregnancy [Unknown]
